FAERS Safety Report 8490732-0 (Version None)
Quarter: 2012Q3

REPORT INFORMATION
  Report Type: 
  Country: None (occurrence: None)
  Receive Date: 20120706
  Receipt Date: 20120626
  Transmission Date: 20120928
  Serious: Yes (Hospitalization, Other)
  Sender: FDA-Public Use
  Company Number: ES-PAR PHARMACEUTICAL, INC-2012SCPR004456

PATIENT

DRUGS (9)
  1. OXYBUTYNIN [Concomitant]
     Indication: URINARY RETENTION
     Dosage: 5 MG, TID
     Route: 065
  2. DIAZEPAM [Concomitant]
     Indication: PRODUCT USED FOR UNKNOWN INDICATION
     Dosage: 5 MG, / DAY
     Route: 065
  3. CITALOPRAM HYDROBROMIDE [Interacting]
     Indication: DEPRESSION
     Dosage: 20 MG, / DAY
     Route: 065
  4. REBOXETINE [Interacting]
     Indication: DEPRESSION
     Dosage: 4 MG, / DAY
     Route: 065
  5. ENALAPRIL MALEATE [Concomitant]
     Indication: PRODUCT USED FOR UNKNOWN INDICATION
     Dosage: UNK, UNKNOWN
     Route: 065
  6. SULPIRIDE [Concomitant]
     Indication: PRODUCT USED FOR UNKNOWN INDICATION
     Dosage: 50 MG, / DAY
     Route: 065
  7. CIPROFLOXACIN EXTENDED RELEASE [Interacting]
     Indication: URINARY RETENTION
     Dosage: 500 MG, BID
     Route: 065
  8. ASPIRIN [Concomitant]
     Indication: PRODUCT USED FOR UNKNOWN INDICATION
     Dosage: UNK, UNKNOWN
     Route: 065
  9. FLUOXETINE [Suspect]
     Indication: DEPRESSION
     Dosage: 20 MG, / DAY
     Route: 065

REACTIONS (2)
  - DRUG INTERACTION [None]
  - SEROTONIN SYNDROME [None]
